FAERS Safety Report 6138537-X (Version None)
Quarter: 2009Q1

REPORT INFORMATION
  Report Type: 
  Country: None (occurrence: None)
  Receive Date: 20090327
  Receipt Date: 20090327
  Transmission Date: 20090719
  Serious: Yes (Hospitalization)
  Sender: FDA-Public Use
  Company Number: None

PATIENT
  Age: 45 Year
  Sex: Female

DRUGS (1)
  1. KETOROLAC TROMETHAMINE [Suspect]
     Indication: PROCEDURAL PAIN
     Dosage: 30 MG Q6H PRN PAIN IV BOLUS
     Route: 040
     Dates: start: 20081022, end: 20081027

REACTIONS (2)
  - RENAL FAILURE ACUTE [None]
  - RENAL TUBULAR NECROSIS [None]
